FAERS Safety Report 17125379 (Version 2)
Quarter: 2020Q1

REPORT INFORMATION
  Report Type: Spontaneous
  Country: FR (occurrence: FR)
  Receive Date: 20191207
  Receipt Date: 20200102
  Transmission Date: 20200409
  Serious: Yes (Disabling)
  Sender: FDA-Public Use
  Company Number: FR-AUROBINDO-AUR-APL-2019-103159

PATIENT
  Age: 84 Year
  Sex: Male

DRUGS (9)
  1. FORADIL [Concomitant]
     Active Substance: FORMOTEROL FUMARATE
     Indication: PRODUCT USED FOR UNKNOWN INDICATION
     Dosage: 2 UNK, ONCE A DAY
     Route: 055
     Dates: start: 2004
  2. NASONEX [Concomitant]
     Active Substance: MOMETASONE FUROATE
     Indication: HYPERTENSION
     Dosage: 2 UNK, ONCE A DAY
     Route: 045
     Dates: start: 2004
  3. PREVISCAN [Concomitant]
     Indication: ATRIAL FIBRILLATION
     Dosage: 1 DOSAGE FORM, ONCE A DAY
     Route: 048
     Dates: start: 2004
  4. PARACETAMOL [Concomitant]
     Active Substance: ACETAMINOPHEN
     Indication: PAIN
     Dosage: 3 GRAM, ONCE A DAY
     Route: 048
     Dates: start: 2004, end: 20191029
  5. RAMIPRIL+HYDROCHLOROTHIAZIDE [Suspect]
     Active Substance: HYDROCHLOROTHIAZIDE\RAMIPRIL
     Indication: HYPERTENSION
     Dosage: 1 DOSAGE FORM, ONCE A DAY
     Route: 048
     Dates: start: 2004
  6. OMEPRAZOLE. [Concomitant]
     Active Substance: OMEPRAZOLE
     Indication: PRODUCT USED FOR UNKNOWN INDICATION
     Dosage: 20 MILLIGRAM, ONCE A DAY
     Route: 048
     Dates: start: 2004
  7. AMIODARONE [Concomitant]
     Active Substance: AMIODARONE
     Indication: ATRIAL FIBRILLATION
     Dosage: 200 MILLIGRAM, ONCE A DAY
     Route: 048
     Dates: start: 2004
  8. AMLODIPINE [Concomitant]
     Active Substance: AMLODIPINE BESYLATE
     Indication: HYPERTENSION
     Dosage: 5 MILLIGRAM, ONCE A DAY
     Route: 048
     Dates: start: 2004
  9. FUROSEMIDE. [Concomitant]
     Active Substance: FUROSEMIDE
     Indication: HYPERTENSION
     Dosage: 20 MILLIGRAM, ONCE A DAY
     Route: 048
     Dates: start: 2004, end: 20191029

REACTIONS (3)
  - Rash [Recovering/Resolving]
  - Eczema [Recovering/Resolving]
  - Pruritus [Recovering/Resolving]

NARRATIVE: CASE EVENT DATE: 20191013
